FAERS Safety Report 8853169 (Version 3)
Quarter: 2013Q3

REPORT INFORMATION
  Report Type: Report from Study
  Country: US (occurrence: US)
  Receive Date: 20121022
  Receipt Date: 20130704
  Transmission Date: 20140515
  Serious: Yes (Death, Life-Threatening)
  Sender: FDA-Public Use
  Company Number: US-ROCHE-1143298

PATIENT
  Sex: 0

DRUGS (5)
  1. BEVACIZUMAB [Suspect]
     Indication: COLON CANCER METASTATIC
     Dosage: ON DAY 1
     Route: 065
  2. CALCIUM FOLINATE [Suspect]
     Indication: COLON CANCER METASTATIC
     Route: 065
  3. OXALIPLATIN [Suspect]
     Indication: COLON CANCER METASTATIC
     Route: 065
  4. FLUOROURACIL [Suspect]
     Indication: COLON CANCER METASTATIC
     Route: 040
  5. FLUOROURACIL [Suspect]
     Dosage: CONTINUOUS INFUSION OVER 46 HOURS STARTING ON DAY 1
     Route: 065

REACTIONS (9)
  - Diarrhoea [Fatal]
  - Posterior reversible encephalopathy syndrome [Fatal]
  - Sudden death [Fatal]
  - Sepsis [Fatal]
  - Neutropenic infection [Unknown]
  - Infection [Unknown]
  - Embolism [Unknown]
  - Neuropathy peripheral [Unknown]
  - Dehydration [Unknown]
